FAERS Safety Report 14991920 (Version 11)
Quarter: 2019Q2

REPORT INFORMATION
  Report Type: Spontaneous
  Country: US (occurrence: US)
  Receive Date: 20180608
  Receipt Date: 20190610
  Transmission Date: 20190711
  Serious: No
  Sender: FDA-Public Use
  Company Number: US-ACTELION-A-US2018-173514

PATIENT
  Age: 34 Year
  Sex: Female
  Weight: 65.31 kg

DRUGS (6)
  1. OPSUMIT [Suspect]
     Active Substance: MACITENTAN
     Indication: PULMONARY ARTERIAL HYPERTENSION
     Dosage: 10 MG, QD
     Route: 048
  2. REMODULIN [Concomitant]
     Active Substance: TREPROSTINIL
     Dosage: 128 NG/KG, PER MIN
  3. LETAIRIS [Concomitant]
     Active Substance: AMBRISENTAN
  4. REMODULIN [Concomitant]
     Active Substance: TREPROSTINIL
     Dosage: 108 NG/KG, PER MIN
  5. ADEMPAS [Suspect]
     Active Substance: RIOCIGUAT
     Indication: PRODUCT USED FOR UNKNOWN INDICATION
     Route: 065
  6. ADCIRCA [Concomitant]
     Active Substance: TADALAFIL

REACTIONS (16)
  - Fatigue [Unknown]
  - Sinus congestion [Unknown]
  - Catheter management [Recovered/Resolved]
  - Diarrhoea [Unknown]
  - Weight decreased [Unknown]
  - Blood pressure systolic decreased [Unknown]
  - Catheter site erythema [Recovered/Resolved]
  - Catheterisation cardiac [Unknown]
  - Headache [Not Recovered/Not Resolved]
  - Hypotension [Unknown]
  - Catheter site swelling [Recovered/Resolved]
  - Hypersomnia [Unknown]
  - Infection [Unknown]
  - Catheter site discharge [Recovered/Resolved]
  - Catheter site pain [Recovered/Resolved]
  - Wound [Unknown]

NARRATIVE: CASE EVENT DATE: 20181211
